FAERS Safety Report 26082867 (Version 3)
Quarter: 2025Q4

REPORT INFORMATION
  Report Type: Spontaneous
  Country: US (occurrence: US)
  Receive Date: 20251124
  Receipt Date: 20251129
  Transmission Date: 20260118
  Serious: Yes (Hospitalization)
  Sender: SANOFI AVENTIS
  Company Number: US-SA-2025SA350593

PATIENT
  Age: 77 Year
  Sex: Female
  Weight: 79.09 kg

DRUGS (2)
  1. DUPIXENT [Suspect]
     Active Substance: DUPILUMAB
     Indication: Dermatitis atopic
     Dosage: UNK UNK, 1X
     Route: 058
     Dates: start: 20251107, end: 20251107
  2. DUPIXENT [Suspect]
     Active Substance: DUPILUMAB
     Dosage: 300 MG, QOW
     Route: 058
     Dates: start: 20251121

REACTIONS (5)
  - Muscle strain [Unknown]
  - Muscle spasms [Unknown]
  - Hospitalisation [Unknown]
  - Contusion [Unknown]
  - Scratch [Unknown]

NARRATIVE: CASE EVENT DATE: 20250101
